FAERS Safety Report 5094314-2 (Version None)
Quarter: 2006Q3

REPORT INFORMATION
  Report Type: 
  Country: None (occurrence: None)
  Receive Date: 20060830
  Receipt Date: 20060830
  Transmission Date: 20061208
  Serious: Yes (Hospitalization, Other)
  Sender: FDA-Public Use
  Company Number: None

PATIENT
  Age: 69 Year
  Sex: Female

DRUGS (13)
  1. CARBAMAZEPINE [Suspect]
     Indication: POST HERPETIC NEURALGIA
     Dosage: 100 MG TWO TIMES DAILY PO
     Route: 048
  2. MEXITILINE 150 MG [Suspect]
     Indication: POST HERPETIC NEURALGIA
     Dosage: 150 MG THREE TIMES DAILY PO
     Route: 048
  3. BENICAR HCT [Concomitant]
  4. AMLODIPINE [Concomitant]
  5. METOPROLOL TARTRATE [Concomitant]
  6. OMEPRAZOLE [Concomitant]
  7. LEVOTHYROXIN [Concomitant]
  8. AMITRIPTYLINE HCL [Concomitant]
  9. NASONEX [Concomitant]
  10. ALENDRONATE SODIUM [Concomitant]
  11. FOLIC ACID [Concomitant]
  12. B-12 [Concomitant]
  13. OSCAL +D [Concomitant]

REACTIONS (3)
  - HYPONATRAEMIA [None]
  - HYPOVOLAEMIA [None]
  - PEMPHIGOID [None]
